FAERS Safety Report 15004174 (Version 1)
Quarter: 2018Q2

REPORT INFORMATION
  Report Type: Spontaneous
  Country: US (occurrence: US)
  Receive Date: 20180524
  Receipt Date: 20180524
  Transmission Date: 20180711
  Serious: Yes (Other)
  Sender: FDA-Public Use
  Company Number: None

PATIENT
  Age: 34 Year
  Sex: Male
  Weight: 69.3 kg

DRUGS (5)
  1. AZITHROMYCIN TABLETS USP 250 MG [Suspect]
     Active Substance: AZITHROMYCIN MONOHYDRATE
     Indication: BRONCHITIS
     Dosage: ?          QUANTITY:6 TABLETS
     Route: 048
     Dates: start: 20180522, end: 20180524
  2. VICKS DAYQUIL [Concomitant]
     Active Substance: DEXTROMETHORPHAN HYDROBROMIDE\GUAIFENESIN
  3. AZITHROMYCIN TABLETS USP 250 MG [Suspect]
     Active Substance: AZITHROMYCIN MONOHYDRATE
     Indication: SINUSITIS
     Dosage: ?          QUANTITY:6 TABLETS
     Route: 048
     Dates: start: 20180522, end: 20180524
  4. AIRBORNE IMMUNE SUPPORT SUPPLEMENT [Concomitant]
  5. NYQUIL SEVERE [Concomitant]
     Active Substance: ACETAMINOPHEN\DEXTROMETHORPHAN HYDROBROMIDE\DOXYLAMINE SUCCINATE\PHENYLEPHRINE HYDROCHLORIDE

REACTIONS (3)
  - Insomnia [None]
  - Heart rate irregular [None]
  - Heart rate increased [None]

NARRATIVE: CASE EVENT DATE: 20180524
